FAERS Safety Report 4749067-1 (Version None)
Quarter: 2005Q3

REPORT INFORMATION
  Report Type: 
  Country: None (occurrence: None)
  Receive Date: 20050817
  Receipt Date: 20050808
  Transmission Date: 20060218
  Serious: Yes (Other)
  Sender: FDA-Public Use
  Company Number: B0390527A

PATIENT
  Age: 59 Year
  Sex: Female

DRUGS (1)
  1. CHLORPROMAZINE HCL [Suspect]

REACTIONS (8)
  - CATARACT SUBCAPSULAR [None]
  - CORNEAL DEPOSITS [None]
  - CORNEAL DISORDER [None]
  - DRUG INTERACTION [None]
  - KERATOCONUS [None]
  - OCULAR TOXICITY [None]
  - SLIT-LAMP TESTS ABNORMAL [None]
  - VISION BLURRED [None]
